FAERS Safety Report 21224291 (Version 1)
Quarter: 2022Q3

REPORT INFORMATION
  Report Type: Spontaneous
  Country: US (occurrence: US)
  Receive Date: 20220817
  Receipt Date: 20220817
  Transmission Date: 20221026
  Serious: Yes (Life-Threatening, Hospitalization, Other)
  Sender: FDA-Public Use
  Company Number: US-MYLANLABS-2022M1086482

PATIENT
  Age: 51 Year
  Sex: Male

DRUGS (7)
  1. DIAZEPAM [Suspect]
     Active Substance: DIAZEPAM
     Indication: Symptomatic treatment
     Dosage: 10 MILLIGRAM
     Route: 042
  2. DIAZEPAM [Suspect]
     Active Substance: DIAZEPAM
     Indication: Drug withdrawal syndrome
  3. FENTANYL [Suspect]
     Active Substance: FENTANYL
     Indication: Product used for unknown indication
     Dosage: UNK, USED FOR YEARS
     Route: 062
  4. ONDANSETRON [Suspect]
     Active Substance: ONDANSETRON
     Indication: Symptomatic treatment
     Dosage: 4 MILLIGRAM, 4 MG OVER 1.5 H
     Route: 065
  5. ONDANSETRON [Suspect]
     Active Substance: ONDANSETRON
     Indication: Drug withdrawal syndrome
  6. OLANZAPINE [Suspect]
     Active Substance: OLANZAPINE
     Indication: Product used for unknown indication
     Dosage: UNK
     Route: 065
  7. OLANZAPINE\SAMIDORPHAN [Suspect]
     Active Substance: OLANZAPINE\SAMIDORPHAN
     Indication: Weight increased
     Dosage: 1 UNK, RECEIVED ONCE
     Route: 048

REACTIONS (4)
  - Drug ineffective [Unknown]
  - Drug dependence [Recovered/Resolved]
  - Weight increased [Unknown]
  - Off label use [Unknown]
